FAERS Safety Report 6335594-2 (Version None)
Quarter: 2009Q3

REPORT INFORMATION
  Report Type: 
  Country: None (occurrence: None)
  Receive Date: 20090831
  Receipt Date: 20090819
  Transmission Date: 20100115
  Serious: Yes (Other)
  Sender: FDA-Public Use
  Company Number: GB-PFIZER INC-2009256635

PATIENT
  Age: 48 Year

DRUGS (1)
  1. CHAMPIX [Suspect]
     Dosage: 1 MG, UNIT DOSE
     Route: 048
     Dates: start: 20090406, end: 20090624

REACTIONS (5)
  - DYSPNOEA [None]
  - MOOD SWINGS [None]
  - PALPITATIONS [None]
  - PANIC ATTACK [None]
  - WITHDRAWAL SYNDROME [None]
